FAERS Safety Report 4467023-8 (Version None)
Quarter: 2004Q4

REPORT INFORMATION
  Report Type: 
  Country: None (occurrence: None)
  Receive Date: 20041001
  Receipt Date: 20041001
  Transmission Date: 20050328
  Serious: Yes (Death)
  Sender: FDA-Public Use
  Company Number: None

PATIENT
  Age: 51 Year
  Sex: Male
  Weight: 124.7392 kg

DRUGS (1)
  1. VIOXX  25MG  MERCK-MEDCO [Suspect]
     Indication: INFLAMMATION
     Dates: start: 20040218, end: 20040428

REACTIONS (4)
  - CARDIAC ARREST [None]
  - CARDIAC DISORDER [None]
  - DRUG INTERACTION [None]
  - FLUID RETENTION [None]
